FAERS Safety Report 5733600-7 (Version None)
Quarter: 2008Q2

REPORT INFORMATION
  Report Type: 
  Country: None (occurrence: None)
  Receive Date: 20080509
  Receipt Date: 20080429
  Transmission Date: 20081010
  Serious: Yes (Other)
  Sender: FDA-Public Use
  Company Number: CA-PFIZER INC-2008038900

PATIENT
  Age: 36 Year
  Sex: Male

DRUGS (2)
  1. CHANTIX [Suspect]
  2. ALCOHOL [Interacting]
     Dosage: FREQ:6 BEERS

REACTIONS (4)
  - AGGRESSION [None]
  - DRUG INTERACTION [None]
  - MOOD ALTERED [None]
  - PSYCHOTIC DISORDER [None]
